FAERS Safety Report 18720023 (Version 1)
Quarter: 2021Q1

REPORT INFORMATION
  Report Type: Spontaneous
  Country: PL (occurrence: PL)
  Receive Date: 20210109
  Receipt Date: 20210109
  Transmission Date: 20210419
  Serious: Yes (Other)
  Sender: FDA-Public Use
  Company Number: PL-ALVOGEN-2021-ALVOGEN-115978

PATIENT
  Sex: Female

DRUGS (3)
  1. ETOPOSIDE. [Suspect]
     Active Substance: ETOPOSIDE
     Indication: GERM CELL NEOPLASM
     Dosage: 200 MG/M2/DAY, DAYS ?6 TO ?3
  2. MELPHALAN. [Suspect]
     Active Substance: MELPHALAN
     Indication: GERM CELL NEOPLASM
     Dosage: 140 MG/M2 ON DAY ?1
  3. CARBOPLATIN. [Suspect]
     Active Substance: CARBOPLATIN
     Indication: GERM CELL NEOPLASM
     Dosage: 200 MG/M2/DAY?DAYS ?6 TO ?3,

REACTIONS (6)
  - Hypertransaminasaemia [Recovered/Resolved]
  - Pyrexia [Recovered/Resolved]
  - Venoocclusive liver disease [Recovered/Resolved]
  - Neutropenia [Recovered/Resolved]
  - Mucosal inflammation [Recovered/Resolved]
  - Leukopenia [Recovered/Resolved]
